FAERS Safety Report 4806690-3 (Version None)
Quarter: 2005Q4

REPORT INFORMATION
  Report Type: 
  Country: None (occurrence: None)
  Receive Date: 20051019
  Receipt Date: 20051004
  Transmission Date: 20060501
  Serious: Yes (Hospitalization)
  Sender: FDA-Public Use
  Company Number: USA050393358

PATIENT
  Age: 64 Year
  Sex: Female

DRUGS (1)
  1. FORTEO [Suspect]
     Indication: OSTEOPOROSIS
     Dosage: 20 UG/ONCE DAY
     Dates: start: 20050201

REACTIONS (8)
  - CONDITION AGGRAVATED [None]
  - DYSSTASIA [None]
  - KNEE ARTHROPLASTY [None]
  - MEDICATION ERROR [None]
  - NAUSEA [None]
  - OVERDOSE [None]
  - PAIN IN EXTREMITY [None]
  - PYREXIA [None]
